FAERS Safety Report 25116993 (Version 1)
Quarter: 2025Q1

REPORT INFORMATION
  Report Type: Spontaneous
  Country: US (occurrence: US)
  Receive Date: 20250325
  Receipt Date: 20250325
  Transmission Date: 20250409
  Serious: Yes (Other)
  Sender: SANOFI AVENTIS
  Company Number: US-DialogSolutions-SAAVPROD-PI749502-C1

PATIENT
  Age: 56 Year
  Sex: Female

DRUGS (2)
  1. LEFLUNOMIDE [Suspect]
     Active Substance: LEFLUNOMIDE
     Indication: Rheumatoid arthritis
  2. TOCILIZUMAB [Suspect]
     Active Substance: TOCILIZUMAB
     Indication: Rheumatoid arthritis

REACTIONS (7)
  - Thrombosis [Unknown]
  - Aortic pseudoaneurysm [Unknown]
  - Endocarditis [Unknown]
  - Abdominal pain [Unknown]
  - Intracardiac mass [Unknown]
  - Electrocardiogram ST segment elevation [Unknown]
  - Tricuspid valve incompetence [Unknown]
